FAERS Safety Report 22038095 (Version 2)
Quarter: 2023Q2

REPORT INFORMATION
  Report Type: Other
  Country: US (occurrence: None)
  Receive Date: 20230227
  Receipt Date: 20230418
  Transmission Date: 20230722
  Serious: Yes (Other)
  Sender: FDA-Public Use
  Company Number: US-ROCHE-3290401

PATIENT
  Age: 63 Year
  Sex: Female
  Weight: 66.738 kg

DRUGS (2)
  1. OCREVUS [Suspect]
     Active Substance: OCRELIZUMAB
     Indication: Multiple sclerosis
     Route: 042
     Dates: start: 20221121
  2. RITALIN [Concomitant]
     Active Substance: METHYLPHENIDATE HYDROCHLORIDE

REACTIONS (3)
  - Pneumonia viral [Not Recovered/Not Resolved]
  - Malaise [Not Recovered/Not Resolved]
  - Cardiomegaly [Not Recovered/Not Resolved]

NARRATIVE: CASE EVENT DATE: 20230128
